FAERS Safety Report 5228602-3 (Version None)
Quarter: 2007Q1

REPORT INFORMATION
  Report Type: 
  Country: None (occurrence: None)
  Receive Date: 20070131
  Receipt Date: 20070123
  Transmission Date: 20070707
  Serious: Yes (Other)
  Sender: FDA-Public Use
  Company Number: B0456278A

PATIENT
  Sex: 0

DRUGS (1)
  1. WELLBUTRIN [Suspect]
     Indication: SMOKING CESSATION THERAPY

REACTIONS (3)
  - ACUTE MYOCARDIAL INFARCTION [None]
  - PRURITUS [None]
  - RASH [None]
